FAERS Safety Report 19672900 (Version 1)
Quarter: 2021Q3

REPORT INFORMATION
  Report Type: Spontaneous
  Country: US (occurrence: US)
  Receive Date: 20210809
  Receipt Date: 20210809
  Transmission Date: 20211014
  Serious: Yes (Hospitalization)
  Sender: FDA-Public Use
  Company Number: US-AUROBINDO-AUR-APL-2021-033062

PATIENT
  Age: 51 Year
  Sex: Male

DRUGS (5)
  1. NALOXONE [Concomitant]
     Active Substance: NALOXONE
     Dosage: 0.4 MILLIGRAM
     Route: 042
  2. NALOXONE [Concomitant]
     Active Substance: NALOXONE
     Indication: PRODUCT USED FOR UNKNOWN INDICATION
     Dosage: 2 MILLIGRAM
     Route: 065
  3. NALOXONE [Concomitant]
     Active Substance: NALOXONE
     Dosage: 0.2 MILLIGRAM
     Route: 042
  4. NALOXONE [Concomitant]
     Active Substance: NALOXONE
     Indication: PRODUCT USED FOR UNKNOWN INDICATION
     Dosage: 0.2 MILLIGRAM/HOUR
     Route: 065
  5. METHADONE [Suspect]
     Active Substance: METHADONE HYDROCHLORIDE
     Indication: PRODUCT USED FOR UNKNOWN INDICATION
     Dosage: 90 MILLIGRAM, ONCE A DAY
     Route: 048

REACTIONS (2)
  - Toxicity to various agents [Unknown]
  - Drug interaction [Unknown]
